FAERS Safety Report 5366835-6 (Version None)
Quarter: 2007Q2

REPORT INFORMATION
  Report Type: 
  Country: None (occurrence: None)
  Receive Date: 20070622
  Receipt Date: 20070613
  Transmission Date: 20071010
  Serious: Yes (Hospitalization)
  Sender: FDA-Public Use
  Company Number: JP-JNJFOC-20060703504

PATIENT
  Sex: Male
  Weight: 53 kg

DRUGS (33)
  1. REMICADE [Suspect]
     Route: 042
  2. REMICADE [Suspect]
     Route: 042
  3. REMICADE [Suspect]
     Route: 042
  4. REMICADE [Suspect]
     Dosage: DOSE 6-17 GIVEN ON UNSPECIFIED DATES.
     Route: 042
  5. REMICADE [Suspect]
     Dosage: DOSE 6-17 GIVEN ON UNSPECIFIED DATES.
     Route: 042
  6. REMICADE [Suspect]
     Dosage: DOSE 6-17 GIVEN ON UNSPECIFIED DATES.
     Route: 042
  7. REMICADE [Suspect]
     Dosage: DOSE 6-17 GIVEN ON UNSPECIFIED DATES.
     Route: 042
  8. REMICADE [Suspect]
     Dosage: DOSE 6-17 GIVEN ON UNSPECIFIED DATES.
     Route: 042
  9. REMICADE [Suspect]
     Dosage: DOSE 6-17 GIVEN ON UNSPECIFIED DATES.
     Route: 042
  10. REMICADE [Suspect]
     Dosage: DOSE 6-17 GIVEN ON UNSPECIFIED DATES.
     Route: 042
  11. REMICADE [Suspect]
     Dosage: DOSE 6-17 GIVEN ON UNSPECIFIED DATES.
     Route: 042
  12. REMICADE [Suspect]
     Dosage: DOSE 6-17 GIVEN ON UNSPECIFIED DATES.
     Route: 042
  13. REMICADE [Suspect]
     Dosage: DOSE 6-17 GIVEN ON UNSPECIFIED DATES.
     Route: 042
  14. REMICADE [Suspect]
     Dosage: DOSE 6-17 GIVEN ON UNSPECIFIED DATES.
     Route: 042
  15. REMICADE [Suspect]
     Dosage: DOSE 6-17 GIVEN ON UNSPECIFIED DATES.
     Route: 042
  16. REMICADE [Suspect]
     Route: 042
  17. REMICADE [Suspect]
     Route: 042
  18. REMICADE [Suspect]
     Route: 042
  19. REMICADE [Suspect]
     Route: 042
  20. REMICADE [Suspect]
     Indication: RHEUMATOID ARTHRITIS
     Route: 042
  21. PREDONINE [Suspect]
     Indication: RHEUMATOID ARTHRITIS
     Route: 048
  22. RHEUMATREX [Suspect]
     Indication: RHEUMATOID ARTHRITIS
     Route: 048
  23. PREDNISOLONE [Suspect]
     Indication: RHEUMATOID ARTHRITIS
     Route: 048
  24. PROGRAF [Suspect]
     Indication: RHEUMATOID ARTHRITIS
     Route: 048
  25. RHEUMATREX [Concomitant]
     Route: 048
  26. RHEUMATREX [Concomitant]
     Route: 048
  27. BREDININ [Concomitant]
     Indication: RHEUMATOID ARTHRITIS
     Route: 048
  28. AZULFIDINE EN-TABS [Concomitant]
     Indication: RHEUMATOID ARTHRITIS
     Route: 048
  29. LOXONIN [Concomitant]
     Indication: RHEUMATOID ARTHRITIS
     Route: 048
  30. MUCOSTA [Concomitant]
     Route: 048
  31. CYTOTEC [Concomitant]
     Route: 048
  32. PROGRAF [Concomitant]
     Route: 048
  33. ADRENAL HORMONE PREPARATION [Concomitant]

REACTIONS (4)
  - ARTHRALGIA [None]
  - JOINT SWELLING [None]
  - PLEURAL EFFUSION [None]
  - PNEUMOCYSTIS JIROVECI PNEUMONIA [None]
